FAERS Safety Report 17040520 (Version 1)
Quarter: 2019Q4

REPORT INFORMATION
  Report Type: Spontaneous
  Country: AU (occurrence: AU)
  Receive Date: 20191117
  Receipt Date: 20191117
  Transmission Date: 20200122
  Serious: Yes (Death)
  Sender: FDA-Public Use
  Company Number: AU-ROCHE-2463702

PATIENT
  Age: 39 Year
  Sex: Female

DRUGS (2)
  1. XOLAIR [Suspect]
     Active Substance: OMALIZUMAB
     Indication: ASTHMA
     Dosage: UNK UNK, Q2W
     Route: 065
     Dates: start: 2007
  2. XOLAIR [Suspect]
     Active Substance: OMALIZUMAB
     Dosage: UNK (8 WEEKLY)
     Route: 065

REACTIONS (2)
  - Rash [Unknown]
  - Asthma [Fatal]
